FAERS Safety Report 9465076 (Version 2)
Quarter: 2013Q4

REPORT INFORMATION
  Report Type: Spontaneous
  Country: US (occurrence: US)
  Receive Date: 20130819
  Receipt Date: 20131014
  Transmission Date: 20140711
  Serious: Yes (Hospitalization, Other)
  Sender: FDA-Public Use
  Company Number: US-FRI-1000047764

PATIENT
  Age: 54 Year
  Sex: Male
  Weight: 88.9 kg

DRUGS (9)
  1. VIIBRYD [Suspect]
     Dosage: 20 MG
     Route: 048
     Dates: start: 20120606, end: 20121118
  2. VIIBRYD [Suspect]
     Indication: DEPRESSION
     Dosage: 40 MG
     Route: 048
     Dates: start: 20121119, end: 20130730
  3. METOPROLOL [Concomitant]
     Dosage: 50 MG
  4. METANX [Concomitant]
     Dosage: TWICE DAILY
  5. VALPROIC ACID [Concomitant]
     Dosage: 750 MG
  6. XANAX [Concomitant]
     Dosage: 1 MG AT BEDTIME AS NEEDED
  7. TRAZODONE [Concomitant]
     Dosage: 75 MG AT BEDTIME
  8. OXYGEN [Concomitant]
  9. VIIBRYD [Suspect]
     Indication: DEPRESSION
     Dosage: 10 MG
     Route: 048
     Dates: start: 20120503, end: 20120605

REACTIONS (4)
  - Chronic inflammatory demyelinating polyradiculoneuropathy [Not Recovered/Not Resolved]
  - Anxiety [Recovered/Resolved]
  - Irritability [Recovered/Resolved]
  - Personality change [Recovered/Resolved]
